FAERS Safety Report 6840721-4 (Version None)
Quarter: 2010Q3

REPORT INFORMATION
  Report Type: 
  Country: None (occurrence: None)
  Receive Date: 20100714
  Receipt Date: 20100706
  Transmission Date: 20110219
  Serious: Yes (Hospitalization, Disabling, Other)
  Sender: FDA-Public Use
  Company Number: US-GENENTECH-297283

PATIENT
  Sex: Female

DRUGS (16)
  1. XOLAIR [Suspect]
     Indication: ANAPHYLACTIC REACTION
     Dosage: 150 MG, Q2W
     Route: 058
     Dates: start: 20091101
  2. XOLAIR [Suspect]
     Indication: MASTOCYTOSIS
  3. TRIVORA-21 [Concomitant]
     Indication: PRODUCT USED FOR UNKNOWN INDICATION
  4. PROZAC [Concomitant]
     Indication: DEPRESSION
  5. PRILOSEC [Concomitant]
     Indication: PRODUCT USED FOR UNKNOWN INDICATION
  6. GASTROCROM [Concomitant]
     Indication: PRODUCT USED FOR UNKNOWN INDICATION
  7. ALLEGRA [Concomitant]
     Indication: PRODUCT USED FOR UNKNOWN INDICATION
  8. PREDNISONE TAB [Concomitant]
     Indication: MASTOCYTOSIS
     Dosage: UNK
     Dates: start: 20090101
  9. SINGULAIR [Concomitant]
     Indication: MASTOCYTOSIS
     Dosage: UNK
     Dates: start: 20060726
  10. HYDROXYZINE [Concomitant]
     Indication: MASTOCYTOSIS
     Dosage: UNK
     Dates: start: 20060726
  11. ZANTAC [Concomitant]
     Indication: PRODUCT USED FOR UNKNOWN INDICATION
  12. CROMOLYN SODIUM [Concomitant]
     Indication: MASTOCYTOSIS
     Dosage: UNK
     Dates: start: 20060726
  13. FEXOFENADINE [Concomitant]
     Indication: MASTOCYTOSIS
     Dosage: UNK
     Dates: start: 20060726
  14. DIPHENHYDRAMINE [Concomitant]
     Indication: ANAPHYLACTIC REACTION
     Dosage: UNK
  15. KLONOPIN [Concomitant]
     Indication: ANXIETY
  16. TRINESSA [Concomitant]
     Indication: CONTRACEPTION
     Route: 048

REACTIONS (2)
  - EMBOLIC STROKE [None]
  - OEDEMA PERIPHERAL [None]
